FAERS Safety Report 4552352-X (Version None)
Quarter: 2005Q1

REPORT INFORMATION
  Report Type: 
  Country: None (occurrence: None)
  Receive Date: 20050112
  Receipt Date: 20050112
  Transmission Date: 20050727
  Serious: Yes (Hospitalization)
  Sender: FDA-Public Use
  Company Number: None

PATIENT
  Sex: Male
  Weight: 84.369 kg

DRUGS (1)
  1. TAXOL [Suspect]
     Dates: start: 20040921

REACTIONS (7)
  - BRONCHOSPASM [None]
  - CHEST DISCOMFORT [None]
  - HYPERTENSION [None]
  - IMPLANT SITE REACTION [None]
  - PALPITATIONS [None]
  - PLEURISY [None]
  - TACHYCARDIA [None]
